FAERS Safety Report 12529758 (Version 1)
Quarter: 2016Q3

REPORT INFORMATION
  Report Type: Spontaneous
  Country: US (occurrence: US)
  Receive Date: 20160706
  Receipt Date: 20160706
  Transmission Date: 20161109
  Serious: No
  Sender: FDA-Public Use
  Company Number: US-NOVEL LABORATORIES, INC-E2B_00005655

PATIENT
  Age: 56 Year
  Sex: Female
  Weight: 49.9 kg

DRUGS (1)
  1. GAVILYTE - C [Suspect]
     Active Substance: POLYETHYLENE GLYCOL 3350\POTASSIUM CHLORIDE\SODIUM BICARBONATE\SODIUM CHLORIDE\SODIUM SULFATE ANHYDROUS
     Indication: PRODUCT USED FOR UNKNOWN INDICATION
     Dosage: HALF VOLUME OF BOTTLE, ONCE
     Route: 048
     Dates: start: 20160517, end: 20160517

REACTIONS (3)
  - Back pain [Unknown]
  - Musculoskeletal discomfort [Unknown]
  - Headache [Unknown]

NARRATIVE: CASE EVENT DATE: 20160517
